FAERS Safety Report 24132342 (Version 1)
Quarter: 2024Q3

REPORT INFORMATION
  Report Type: Spontaneous
  Country: US (occurrence: None)
  Receive Date: 20240723
  Receipt Date: 20240723
  Transmission Date: 20241016
  Serious: Yes (Other)
  Sender: Public
  Company Number: None

PATIENT
  Age: 30 Year
  Sex: Female

DRUGS (4)
  1. GLEOSTINE [Suspect]
     Active Substance: LOMUSTINE
     Indication: Glioblastoma
     Dates: start: 20240306, end: 20240723
  2. GLEOSTINE [Suspect]
     Active Substance: LOMUSTINE
     Indication: Glioblastoma
     Dates: start: 20240306, end: 20240723
  3. matulane 50 [Concomitant]
     Dates: start: 20240306, end: 20240723
  4. APREPITANT [Concomitant]
     Active Substance: APREPITANT
     Dates: start: 20240306, end: 20240723

REACTIONS (2)
  - Thrombocytopenia [None]
  - Neutropenia [None]

NARRATIVE: CASE EVENT DATE: 20240723
